FAERS Safety Report 6237778-0 (Version None)
Quarter: 2009Q2

REPORT INFORMATION
  Report Type: 
  Country: None (occurrence: None)
  Receive Date: 20090618
  Receipt Date: 20090604
  Transmission Date: 20091009
  Serious: Yes (Hospitalization)
  Sender: FDA-Public Use
  Company Number: 2009AL003736

PATIENT
  Age: 62 Year
  Sex: Female

DRUGS (21)
  1. DIGOXIN [Suspect]
     Dosage: PO
     Route: 048
  2. ZAROXOLYN [Concomitant]
  3. ACCUPRIL [Concomitant]
  4. LASIX [Concomitant]
  5. OXYCONTIN [Concomitant]
  6. ADVAIR HFA [Concomitant]
  7. AMBIEN [Concomitant]
  8. SOMA [Concomitant]
  9. ALDACTONE [Concomitant]
  10. PERCOCET [Concomitant]
  11. CLIMARA [Concomitant]
  12. ZOCOR [Concomitant]
  13. NEXIUM [Concomitant]
  14. JANUMET [Concomitant]
  15. METHOTREXATE [Concomitant]
  16. BYETTA [Concomitant]
  17. DOXAZOSIN MESYLATE [Concomitant]
  18. PROVIGIL [Concomitant]
  19. PREDNISONE [Concomitant]
  20. INDERAL [Concomitant]
  21. FOLIC ACID [Concomitant]

REACTIONS (5)
  - DEHYDRATION [None]
  - HYPOTENSION [None]
  - NAUSEA [None]
  - THERAPEUTIC AGENT TOXICITY [None]
  - VOMITING [None]
